FAERS Safety Report 18418832 (Version 3)
Quarter: 2021Q1

REPORT INFORMATION
  Report Type: Spontaneous
  Country: US (occurrence: US)
  Receive Date: 20201023
  Receipt Date: 20210215
  Transmission Date: 20210419
  Serious: Yes (Other)
  Sender: FDA-Public Use
  Company Number: US-SA-2020SA296737

PATIENT
  Age: 55 Year
  Sex: Female

DRUGS (3)
  1. KEVZARA [Suspect]
     Active Substance: SARILUMAB
     Dosage: 200 MG (OTHER)
     Route: 058
     Dates: start: 20200924
  2. KEVZARA [Suspect]
     Active Substance: SARILUMAB
     Dosage: 200 MG, OTHER
     Route: 058
     Dates: start: 202010
  3. KEVZARA [Suspect]
     Active Substance: SARILUMAB
     Dosage: 1 DF, 1 INJECTION AS OTHER
     Route: 058
     Dates: start: 20201120

REACTIONS (8)
  - Fibromyalgia [Unknown]
  - Pain [Unknown]
  - Lyme disease [Unknown]
  - Insomnia [Unknown]
  - Product dose omission issue [Unknown]
  - Product dose omission issue [Unknown]
  - Osteoporosis [Unknown]
  - Dyspnoea [Unknown]

NARRATIVE: CASE EVENT DATE: 20201015
